FAERS Safety Report 20188959 (Version 2)
Quarter: 2021Q4

REPORT INFORMATION
  Report Type: Spontaneous
  Country: PT (occurrence: PT)
  Receive Date: 20211215
  Receipt Date: 20211222
  Transmission Date: 20220303
  Serious: Yes (Death, Other)
  Sender: FDA-Public Use
  Company Number: PT-UNITED THERAPEUTICS-UNT-2021-025494

PATIENT

DRUGS (2)
  1. REMODULIN [Suspect]
     Active Substance: TREPROSTINIL
     Indication: Pulmonary arterial hypertension
     Dosage: UNK, CONTINUING
     Route: 058
  2. REMODULIN [Suspect]
     Active Substance: TREPROSTINIL
     Indication: Pulmonary arterial hypertension
     Dosage: 0.018 ?G/KG, CONTINUING
     Route: 041

REACTIONS (3)
  - Cardiac failure [Fatal]
  - Wound infection pseudomonas [Recovering/Resolving]
  - Postoperative wound complication [Recovering/Resolving]

NARRATIVE: CASE EVENT DATE: 20211206
